FAERS Safety Report 23841291 (Version 1)
Quarter: 2024Q2

REPORT INFORMATION
  Report Type: Spontaneous
  Country: US (occurrence: US)
  Receive Date: 20240510
  Receipt Date: 20240510
  Transmission Date: 20240716
  Serious: No
  Sender: FDA-Public Use
  Company Number: US-ASTELLAS-2024US010824

PATIENT
  Age: 89 Year
  Sex: Male

DRUGS (5)
  1. IZERVAY [Suspect]
     Active Substance: AVACINCAPTAD PEGOL SODIUM
     Indication: Dry age-related macular degeneration
     Dosage: 0.1 ML, EVERY 4 WEEKS (BOTH EYES)
     Route: 031
     Dates: start: 20231223
  2. IZERVAY [Suspect]
     Active Substance: AVACINCAPTAD PEGOL SODIUM
     Indication: Dry age-related macular degeneration
     Dosage: 0.1 ML, EVERY 4 WEEKS (BOTH EYES)
     Route: 031
     Dates: start: 20231223
  3. IZERVAY [Suspect]
     Active Substance: AVACINCAPTAD PEGOL SODIUM
     Indication: Dry age-related macular degeneration
     Dosage: 0.1 ML, EVERY 4 WEEKS (BOTH EYES)
     Route: 031
     Dates: start: 20231223
  4. IZERVAY [Suspect]
     Active Substance: AVACINCAPTAD PEGOL SODIUM
     Indication: Dry age-related macular degeneration
     Dosage: 0.1 ML, EVERY 4 WEEKS (BOTH EYES)
     Route: 031
     Dates: start: 20231223
  5. IZERVAY [Suspect]
     Active Substance: AVACINCAPTAD PEGOL SODIUM
     Indication: Dry age-related macular degeneration
     Dosage: 0.1 ML, EVERY 4 WEEKS (BOTH EYES)
     Route: 031
     Dates: start: 20231223

REACTIONS (1)
  - Visual impairment [Recovered/Resolved]

NARRATIVE: CASE EVENT DATE: 20240319
